FAERS Safety Report 8935330 (Version 4)
Quarter: 2014Q1

REPORT INFORMATION
  Report Type: Report from Study
  Country: IT (occurrence: IT)
  Receive Date: 20121129
  Receipt Date: 20140213
  Transmission Date: 20141002
  Serious: Yes (Other)
  Sender: FDA-Public Use
  Company Number: IT-ROCHE-1161234

PATIENT
  Age: 73 Year
  Sex: Male
  Weight: 79 kg

DRUGS (11)
  1. VEMURAFENIB [Suspect]
     Indication: MALIGNANT MELANOMA STAGE IV
     Route: 048
     Dates: start: 20120710
  2. VEMURAFENIB [Suspect]
     Route: 048
     Dates: start: 20120817
  3. FULCROSUPRA [Concomitant]
     Indication: HYPERCHOLESTEROLAEMIA
     Route: 048
     Dates: start: 201003
  4. ASPIRINETTA [Concomitant]
     Route: 048
     Dates: start: 201003
  5. TAMSULOSINA [Concomitant]
     Indication: BENIGN PROSTATIC HYPERPLASIA
     Route: 048
     Dates: start: 20111103
  6. TAMSULOSINA [Concomitant]
     Indication: GASTRITIS
  7. OLPRESS [Concomitant]
     Indication: HYPERTENSION
     Route: 048
     Dates: start: 20110223
  8. PANTOPRAZOLE [Concomitant]
     Indication: PROPHYLAXIS
     Route: 048
     Dates: start: 20120525
  9. DEXAMETHASONE [Concomitant]
     Indication: METASTASES TO CENTRAL NERVOUS SYSTEM
     Route: 048
     Dates: start: 20120525
  10. ACETAMINOPHEN [Concomitant]
     Indication: PAIN
     Route: 048
     Dates: start: 20121207
  11. PARACETAMOL [Concomitant]
     Indication: PAIN
     Route: 048

REACTIONS (11)
  - Thermal burn [Recovered/Resolved]
  - Photosensitivity reaction [Recovered/Resolved]
  - Squamous cell carcinoma of skin [Recovered/Resolved]
  - Squamous cell carcinoma of skin [Recovered/Resolved]
  - Squamous cell carcinoma of skin [Recovered/Resolved]
  - Squamous cell carcinoma [Recovered/Resolved]
  - Basal cell carcinoma [Recovered/Resolved]
  - Blood creatinine increased [Not Recovered/Not Resolved]
  - Bone pain [Recovered/Resolved]
  - Pain in extremity [Recovering/Resolving]
  - Skin lesion [Not Recovered/Not Resolved]
